FAERS Safety Report 25015016 (Version 2)
Quarter: 2025Q1

REPORT INFORMATION
  Report Type: Report from Study
  Country: US (occurrence: US)
  Receive Date: 20250226
  Receipt Date: 20250321
  Transmission Date: 20250408
  Serious: Yes (Other)
  Sender: VERTEX
  Company Number: US-VERTEX PHARMACEUTICALS-2025-002405

PATIENT
  Age: 64 Year
  Sex: Female
  Weight: 83 kg

DRUGS (19)
  1. TRIKAFTA [Suspect]
     Active Substance: ELEXACAFTOR\IVACAFTOR\TEZACAFTOR
     Indication: Cystic fibrosis
     Dosage: HALF DOSE
     Route: 048
     Dates: start: 20250108
  2. TRIKAFTA [Suspect]
     Active Substance: ELEXACAFTOR\IVACAFTOR\TEZACAFTOR
     Route: 048
     Dates: start: 202502
  3. TRIKAFTA [Suspect]
     Active Substance: ELEXACAFTOR\IVACAFTOR\TEZACAFTOR
     Dosage: ONE ORANGE PILL IN AM
     Route: 048
  4. TRIKAFTA [Suspect]
     Active Substance: ELEXACAFTOR\IVACAFTOR\TEZACAFTOR
     Dosage: 2 ORANGE PILLS IN AM
     Route: 048
     Dates: end: 20250308
  5. ADVIL [Concomitant]
     Active Substance: IBUPROFEN
  6. TYLENOL ARTHRITIS PAIN [Concomitant]
     Active Substance: ACETAMINOPHEN
  7. MELOXICAM [Concomitant]
     Active Substance: MELOXICAM
  8. ONDANSETRON [Concomitant]
     Active Substance: ONDANSETRON
  9. FAMOTIDINE [Concomitant]
     Active Substance: FAMOTIDINE
  10. DEMANNOSE [Concomitant]
     Active Substance: DEMANNOSE
  11. ZYRTEC [Concomitant]
     Active Substance: CETIRIZINE HYDROCHLORIDE
  12. HYDROXYZINE HYDROCHLORIDE [Concomitant]
     Active Substance: HYDROXYZINE HYDROCHLORIDE
  13. OCUVITE [Concomitant]
     Active Substance: VITAMINS
  14. Glucosamine + Chondroitin [Concomitant]
  15. CURCUMIN [Concomitant]
     Active Substance: CURCUMIN
  16. CALCIUM [Concomitant]
     Active Substance: CALCIUM
  17. VITAMIN D3 [Concomitant]
     Active Substance: CHOLECALCIFEROL
  18. ATROVENT HFA [Concomitant]
     Active Substance: IPRATROPIUM BROMIDE
  19. OMEPRAZOLE [Concomitant]
     Active Substance: OMEPRAZOLE

REACTIONS (5)
  - Suicidal ideation [Unknown]
  - Negative thoughts [Unknown]
  - Agitation [Unknown]
  - Nausea [Recovered/Resolved]
  - Depressed mood [Unknown]

NARRATIVE: CASE EVENT DATE: 20250108
